FAERS Safety Report 13412804 (Version 4)
Quarter: 2021Q4

REPORT INFORMATION
  Report Type: Spontaneous
  Country: US (occurrence: US)
  Receive Date: 20170406
  Receipt Date: 20211109
  Transmission Date: 20220303
  Serious: No
  Sender: FDA-Public Use
  Company Number: US-JNJFOC-20170308541

PATIENT
  Age: 24 Year
  Sex: Male

DRUGS (9)
  1. RISPERDAL [Suspect]
     Active Substance: RISPERIDONE
     Indication: Behaviour disorder
     Route: 048
     Dates: start: 20060719, end: 20060930
  2. RISPERDAL [Suspect]
     Active Substance: RISPERIDONE
     Indication: Behaviour disorder
     Route: 048
     Dates: start: 20100316, end: 20151205
  3. RISPERDAL [Suspect]
     Active Substance: RISPERIDONE
     Indication: Affective disorder
     Route: 048
     Dates: start: 2002, end: 2015
  4. INVEGA [Suspect]
     Active Substance: PALIPERIDONE
     Indication: Behaviour disorder
     Route: 048
     Dates: start: 20160126, end: 201601
  5. INVEGA [Suspect]
     Active Substance: PALIPERIDONE
     Indication: Mental disorder
     Route: 048
     Dates: start: 20160128
  6. INVEGA [Suspect]
     Active Substance: PALIPERIDONE
     Dosage: 3 MG TO 9 MG
     Route: 048
     Dates: end: 201602
  7. RISPERIDONE [Suspect]
     Active Substance: RISPERIDONE
     Indication: Behaviour disorder
     Dosage: IN VARYING DOSES OF 1 MG, 2 MG AND 3 MG
     Route: 065
     Dates: start: 20100316, end: 20151205
  8. RISPERDAL M-TAB [Suspect]
     Active Substance: RISPERIDONE
     Indication: Behaviour disorder
     Dosage: VARYING DOSES OF 2 MG AND 3 MG
     Route: 048
     Dates: start: 20151020, end: 20151224
  9. RISPERDAL M-TAB [Suspect]
     Active Substance: RISPERIDONE
     Route: 048

REACTIONS (2)
  - Emotional distress [Unknown]
  - Gynaecomastia [Unknown]

NARRATIVE: CASE EVENT DATE: 20140320
